FAERS Safety Report 16342314 (Version 1)
Quarter: 2019Q2

REPORT INFORMATION
  Report Type: Spontaneous
  Country: US (occurrence: US)
  Receive Date: 20190416
  Receipt Date: 20190416
  Transmission Date: 20190711
  Serious: Yes (Other)
  Sender: FDA-Public Use
  Company Number: None

PATIENT

DRUGS (1)
  1. CHILDRENS LORATADINE SUGAR FREE [Suspect]
     Active Substance: LORATADINE
     Indication: SEASONAL ALLERGY
     Dosage: ?          QUANTITY:1 TEASPOON;?
     Route: 048
     Dates: start: 20190402, end: 20190407

REACTIONS (1)
  - Dysphemia [None]

NARRATIVE: CASE EVENT DATE: 20190406
